FAERS Safety Report 11841377 (Version 1)
Quarter: 2015Q4

REPORT INFORMATION
  Report Type: Spontaneous
  Country: US (occurrence: US)
  Receive Date: 20151216
  Receipt Date: 20151216
  Transmission Date: 20160305
  Serious: No
  Sender: FDA-Public Use
  Company Number: US-BAUSCH-BL-2015-020788

PATIENT
  Age: 62 Year
  Sex: Female
  Weight: 53.57 kg

DRUGS (5)
  1. LORTAB [Concomitant]
     Active Substance: ACETAMINOPHEN\HYDROCODONE BITARTRATE
     Indication: PAIN
  2. APRISO [Suspect]
     Active Substance: MESALAMINE
     Indication: COLITIS MICROSCOPIC
     Route: 048
     Dates: start: 201506, end: 2015
  3. SIMVASTATIN. [Concomitant]
     Active Substance: SIMVASTATIN
     Indication: HYPERLIPIDAEMIA
  4. METOPROLOL [Concomitant]
     Active Substance: METOPROLOL
     Indication: HYPERTENSION
  5. MELOXICAM. [Concomitant]
     Active Substance: MELOXICAM
     Indication: BACK PAIN

REACTIONS (3)
  - Arthralgia [Recovering/Resolving]
  - Musculoskeletal stiffness [Recovering/Resolving]
  - Musculoskeletal pain [Recovering/Resolving]

NARRATIVE: CASE EVENT DATE: 201506
